FAERS Safety Report 11163232 (Version 1)
Quarter: 2015Q2

REPORT INFORMATION
  Report Type: Spontaneous
  Country: US (occurrence: US)
  Receive Date: 20150604
  Receipt Date: 20150604
  Transmission Date: 20150821
  Serious: No
  Sender: FDA-Public Use
  Company Number: US-SANOFI-AVENTIS-2013SA094247

PATIENT
  Age: 73 Year
  Sex: Female
  Weight: 72.57 kg

DRUGS (5)
  1. PRAVASTATIN SODIUM. [Concomitant]
     Active Substance: PRAVASTATIN SODIUM
     Indication: BLOOD CHOLESTEROL
     Dosage: DOSE 1-20 MG A DAY
  2. NOVOLOG [Concomitant]
     Active Substance: INSULIN ASPART
  3. LISINOPRIL. [Concomitant]
     Active Substance: LISINOPRIL
     Indication: HYPERTENSION
     Dosage: DOSE 1-20 MG A DAY
  4. SOLOSTAR [Suspect]
     Active Substance: DEVICE
     Indication: TYPE 2 DIABETES MELLITUS
     Dates: start: 20130605
  5. LANTUS SOLOSTAR [Suspect]
     Active Substance: INSULIN GLARGINE
     Indication: TYPE 2 DIABETES MELLITUS
     Dosage: 36-45 UNITS
     Route: 051
     Dates: start: 20130605

REACTIONS (4)
  - Injury associated with device [Unknown]
  - Blood glucose increased [Unknown]
  - Amblyopia [Unknown]
  - Drug dose omission [Unknown]
